FAERS Safety Report 8334097 (Version 2)
Quarter: 2012Q4

REPORT INFORMATION
  Report Type: Report from Study
  Country: UA (occurrence: UA)
  Receive Date: 20120112
  Receipt Date: 20121231
  Transmission Date: 20130627
  Serious: Yes (Hospitalization)
  Sender: FDA-Public Use
  Company Number: UA-ROCHE-1011902

PATIENT
  Age: 53 Year
  Sex: Male
  Weight: 101 kg

DRUGS (11)
  1. RITUXIMAB [Suspect]
     Indication: CHRONIC LYMPHOCYTIC LEUKAEMIA
     Route: 042
     Dates: start: 20110908, end: 20110908
  2. RITUXIMAB [Suspect]
     Route: 042
     Dates: start: 20110915, end: 20111006
  3. NAVITOCLAX [Suspect]
     Indication: CHRONIC LYMPHOCYTIC LEUKAEMIA
     Route: 048
     Dates: start: 20110831, end: 20110908
  4. NAVITOCLAX [Suspect]
     Route: 048
     Dates: start: 20110909, end: 20110929
  5. NAVITOCLAX [Suspect]
     Route: 048
     Dates: start: 20111005, end: 20111008
  6. NAVITOCLAX [Suspect]
     Route: 048
     Dates: start: 20111103
  7. ENALAPRIL MALEATE [Concomitant]
     Indication: HYPERTONIA
     Route: 065
     Dates: start: 20110809, end: 20110824
  8. KARSIL [Concomitant]
     Route: 065
     Dates: start: 20110809, end: 20111010
  9. NEBIVOLOL HYDROCHLORIDE [Concomitant]
     Indication: HYPERTONIA
     Route: 065
     Dates: start: 20110825
  10. RAMIPRIL [Concomitant]
     Indication: HYPERTONIA
     Route: 065
     Dates: start: 20110825
  11. ALLOPURINOL [Concomitant]
     Indication: PROPHYLAXIS
     Route: 065
     Dates: start: 20110831

REACTIONS (2)
  - Hepatitis [Recovered/Resolved]
  - Hepatitis [Recovered/Resolved]
